FAERS Safety Report 8907037 (Version 3)
Quarter: 2013Q2

REPORT INFORMATION
  Report Type: Spontaneous
  Country: FR (occurrence: FR)
  Receive Date: 20121114
  Receipt Date: 20130422
  Transmission Date: 20140414
  Serious: Yes (Hospitalization)
  Sender: FDA-Public Use
  Company Number: FR-009507513-1211FRA005245

PATIENT
  Age: 49 Year
  Sex: Male
  Weight: 63 kg

DRUGS (5)
  1. VICTRELIS [Suspect]
     Indication: HEPATITIS C
     Dosage: 800 MG, TID
     Route: 048
     Dates: start: 201202, end: 20120924
  2. PEGASYS [Concomitant]
     Indication: HEPATITIS C
     Dosage: 180 MICROGRAM, QW
     Route: 058
     Dates: start: 20120110, end: 20121216
  3. COPEGUS [Concomitant]
     Indication: HEPATITIS C
     Dosage: 400 MG, BID
     Route: 048
     Dates: start: 20120110, end: 20121216
  4. SUBUTEX [Concomitant]
     Dosage: 16 MG, UNK
     Route: 048
     Dates: start: 2004
  5. TEMESTA [Concomitant]
     Dosage: 2.5 MG, TID
     Dates: start: 2004

REACTIONS (1)
  - Pulmonary tuberculosis [Recovered/Resolved]
